FAERS Safety Report 11650326 (Version 6)
Quarter: 2016Q2

REPORT INFORMATION
  Report Type: Report from Study
  Country: GB (occurrence: GB)
  Receive Date: 20151021
  Receipt Date: 20160517
  Transmission Date: 20160815
  Serious: Yes (Hospitalization)
  Sender: FDA-Public Use
  Company Number: GB-B.I. PHARMACEUTICALS,INC./RIDGEFIELD-2015-BI-56128BI

PATIENT
  Age: 66 Year
  Sex: Male
  Weight: 106.5 kg

DRUGS (16)
  1. METFORMIN [Concomitant]
     Active Substance: METFORMIN HYDROCHLORIDE
     Dosage: 2 G
     Route: 048
     Dates: start: 20150828
  2. FRUSEMIDE [Concomitant]
     Active Substance: FUROSEMIDE
     Dosage: 20 MG
     Route: 048
     Dates: start: 20150822, end: 20151008
  3. ALLOPURINOL. [Concomitant]
     Active Substance: ALLOPURINOL
     Indication: GOUT
     Dosage: 300 MG
     Route: 048
  4. GLICLAZIDE [Concomitant]
     Active Substance: GLICLAZIDE
     Indication: DIABETES MELLITUS
     Dosage: 320 MG
     Route: 048
     Dates: end: 20150821
  5. ATORVASTATIN [Concomitant]
     Active Substance: ATORVASTATIN
     Indication: HYPERCHOLESTEROLAEMIA
     Dosage: 10 MG
     Route: 048
     Dates: end: 20151008
  6. BISOPROLOL [Concomitant]
     Active Substance: BISOPROLOL
     Indication: MYOCARDIAL ISCHAEMIA
     Dosage: 5 MG
     Route: 048
     Dates: end: 20151008
  7. BISOPROLOL [Concomitant]
     Active Substance: BISOPROLOL
     Dosage: 5 MG
     Route: 048
     Dates: start: 20151009
  8. ASPIRIN EC [Concomitant]
     Active Substance: ASPIRIN
     Indication: ANTICOAGULANT THERAPY
     Dosage: 75 MG
     Route: 048
  9. ATORVASTATIN [Concomitant]
     Active Substance: ATORVASTATIN
     Dosage: 80 MG
     Route: 048
     Dates: start: 20151009
  10. METFORMIN [Concomitant]
     Active Substance: METFORMIN HYDROCHLORIDE
     Indication: DIABETES MELLITUS
     Dosage: 2 G
     Route: 048
     Dates: end: 20150821
  11. LANSOPRAZOLE. [Concomitant]
     Active Substance: LANSOPRAZOLE
     Indication: GASTROOESOPHAGEAL REFLUX DISEASE
     Dosage: 15 MG
     Route: 048
  12. FRUSEMIDE [Concomitant]
     Active Substance: FUROSEMIDE
     Indication: LEFT VENTRICULAR FAILURE
     Dosage: 40 MG
     Route: 048
     Dates: end: 20150821
  13. BIBF 1120 [Suspect]
     Active Substance: NINTEDANIB
     Indication: IDIOPATHIC PULMONARY FIBROSIS
     Dosage: 300 MG
     Route: 048
     Dates: start: 20130408, end: 20151009
  14. GLICLAZIDE [Concomitant]
     Active Substance: GLICLAZIDE
     Dosage: 160 MG
     Route: 048
     Dates: start: 20150822
  15. SPIRONOLACTONE. [Concomitant]
     Active Substance: SPIRONOLACTONE
     Indication: POLYURIA
     Dosage: 25 MG
     Route: 048
  16. FRUSEMIDE [Concomitant]
     Active Substance: FUROSEMIDE
     Dosage: 40 MG
     Route: 048
     Dates: start: 20151009

REACTIONS (1)
  - Myocardial ischaemia [Recovered/Resolved]

NARRATIVE: CASE EVENT DATE: 20151009
